FAERS Safety Report 12078607 (Version 1)
Quarter: 2016Q1

REPORT INFORMATION
  Report Type: Spontaneous
  Country: US (occurrence: US)
  Receive Date: 20160216
  Receipt Date: 20160216
  Transmission Date: 20160526
  Serious: No
  Sender: FDA-Public Use
  Company Number: US-ASTRAZENECA-2016SE12499

PATIENT
  Age: 19579 Day
  Sex: Male

DRUGS (1)
  1. BRILINTA [Suspect]
     Active Substance: TICAGRELOR
     Indication: ACUTE CORONARY SYNDROME
     Route: 048

REACTIONS (4)
  - Dyspnoea [Unknown]
  - Irritability [Unknown]
  - Back pain [Unknown]
  - Insomnia [Unknown]

NARRATIVE: CASE EVENT DATE: 20160202
